FAERS Safety Report 18208730 (Version 1)
Quarter: 2020Q3

REPORT INFORMATION
  Report Type: Spontaneous
  Country: KR (occurrence: KR)
  Receive Date: 20200828
  Receipt Date: 20200828
  Transmission Date: 20201103
  Serious: Yes (Other)
  Sender: FDA-Public Use
  Company Number: KR-GLAXOSMITHKLINE-KR2020APC167710

PATIENT

DRUGS (2)
  1. RELVAR ELLIPTA [Suspect]
     Active Substance: FLUTICASONE FUROATE\VILANTEROL TRIFENATATE
     Indication: PRODUCT USED FOR UNKNOWN INDICATION
     Dosage: UNK, 100
     Route: 055
  2. FLUTICASONE FUROATE 100 MCG [Suspect]
     Active Substance: FLUTICASONE FUROATE
     Indication: PRODUCT USED FOR UNKNOWN INDICATION
     Dosage: UNK, 100MCG
     Route: 055

REACTIONS (4)
  - Wrong technique in product usage process [Unknown]
  - Productive cough [Unknown]
  - Staphylococcal infection [Unknown]
  - Dysphonia [Unknown]
